FAERS Safety Report 6921848-5 (Version None)
Quarter: 2010Q3

REPORT INFORMATION
  Report Type: 
  Country: None (occurrence: None)
  Receive Date: 20100806
  Receipt Date: 20100513
  Transmission Date: 20110219
  Serious: No
  Sender: FDA-Public Use
  Company Number: 2010-06721

PATIENT
  Age: 44 Year
  Sex: Male

DRUGS (2)
  1. RAPAFLO [Suspect]
     Indication: BENIGN PROSTATIC HYPERPLASIA
     Dosage: 1 CAPSUL, DAILY, ORAL 1 CAPSUL, DAILY, ORAL
     Route: 048
     Dates: start: 20091201, end: 20100101
  2. RAPAFLO [Suspect]
     Indication: BENIGN PROSTATIC HYPERPLASIA
     Dosage: 1 CAPSUL, DAILY, ORAL 1 CAPSUL, DAILY, ORAL
     Route: 048
     Dates: start: 20100510

REACTIONS (5)
  - ABDOMINAL DISCOMFORT [None]
  - ABDOMINAL PAIN [None]
  - DIZZINESS [None]
  - DRUG INEFFECTIVE [None]
  - HEADACHE [None]
